FAERS Safety Report 11340073 (Version 4)
Quarter: 2015Q4

REPORT INFORMATION
  Report Type: Spontaneous
  Country: US (occurrence: US)
  Receive Date: 20150805
  Receipt Date: 20151008
  Transmission Date: 20160304
  Serious: Yes (Hospitalization)
  Sender: FDA-Public Use
  Company Number: US-PERRIGO-15US007709

PATIENT
  Age: 43 Year
  Sex: Male
  Weight: 68.27 kg

DRUGS (2)
  1. ACETAMINOPHEN\CAFFEINE\SALICYLATE [Suspect]
     Active Substance: ACETAMINOPHEN\CAFFEINE\SALICYLIC ACID
     Indication: MIGRAINE
     Dosage: 2 TABLETS, PRN
     Route: 048
     Dates: start: 2014, end: 20150716
  2. ACETAMINOPHEN\CAFFEINE\SALICYLATE [Suspect]
     Active Substance: ACETAMINOPHEN\CAFFEINE\SALICYLIC ACID
     Dosage: 2 TABLETS, TWICE IN SIX HOURS
     Route: 048
     Dates: start: 20150715, end: 20150715

REACTIONS (10)
  - Dizziness [Recovered/Resolved]
  - Syncope [Recovered/Resolved]
  - Vomiting [Recovered/Resolved]
  - Nausea [Recovered/Resolved]
  - Anaemia [Recovered/Resolved]
  - Faeces discoloured [Recovered/Resolved]
  - Laceration [Recovered/Resolved]
  - Gastric ulcer [Unknown]
  - Gastric ulcer haemorrhage [Unknown]
  - Inappropriate schedule of drug administration [Recovered/Resolved]

NARRATIVE: CASE EVENT DATE: 20150715
